FAERS Safety Report 22061066 (Version 1)
Quarter: 2023Q1

REPORT INFORMATION
  Report Type: Spontaneous
  Country: US (occurrence: US)
  Receive Date: 20230303
  Receipt Date: 20230303
  Transmission Date: 20230418
  Serious: No
  Sender: FDA-Public Use
  Company Number: US-Covis Pharma GmbH-2023COV00310

PATIENT
  Sex: Female

DRUGS (1)
  1. FERAHEME [Suspect]
     Active Substance: FERUMOXYTOL NON-STOICHIOMETRIC MAGNETITE
     Indication: Product used for unknown indication
     Dosage: ^I HAD ONE (INFUSION) ON DEC 28 AND THEN IN JAN 26.^
     Dates: start: 20221228

REACTIONS (3)
  - Ovarian mass [Not Recovered/Not Resolved]
  - Adrenal mass [Not Recovered/Not Resolved]
  - COVID-19 [Not Recovered/Not Resolved]
